FAERS Safety Report 7570621-6 (Version None)
Quarter: 2011Q2

REPORT INFORMATION
  Report Type: 
  Country: None (occurrence: None)
  Receive Date: 20110624
  Receipt Date: 20110415
  Transmission Date: 20111010
  Serious: No
  Sender: FDA-Public Use
  Company Number: US-ALLERGAN-1105321US

PATIENT
  Age: 63 Year
  Sex: Female

DRUGS (4)
  1. LATISSE [Suspect]
     Indication: GROWTH OF EYELASHES
     Dosage: 2 GTT, UNKNOWN
     Route: 061
     Dates: start: 20091101
  2. LATISSE [Suspect]
     Indication: EYELASH THICKENING
  3. PERMANENT MAKE-UP [Concomitant]
  4. EYELINER [Concomitant]

REACTIONS (3)
  - SKIN HYPERPIGMENTATION [None]
  - EYELASH THICKENING [None]
  - MADAROSIS [None]
